FAERS Safety Report 12558138 (Version 3)
Quarter: 2016Q3

REPORT INFORMATION
  Report Type: Spontaneous
  Country: BR (occurrence: BR)
  Receive Date: 20160714
  Receipt Date: 20160728
  Transmission Date: 20161109
  Serious: Yes (Hospitalization)
  Sender: FDA-Public Use
  Company Number: BR-009507513-1607BRA004957

PATIENT
  Age: 71 Year
  Sex: Female
  Weight: 58 kg

DRUGS (8)
  1. FINASTERIDE. [Suspect]
     Active Substance: FINASTERIDE
     Dosage: 2 MG, UNKNOWN
     Route: 065
  2. ZETIA [Concomitant]
     Active Substance: EZETIMIBE
     Dosage: UNK
  3. OMEGA [Concomitant]
     Active Substance: CONVALLARIA MAJALIS\CRATAEGUS LAEVIGATA LEAF\PROXYPHYLLINE
     Dosage: UNK
     Dates: start: 201604, end: 201607
  4. OLMESARTAN MEDOXOMIL. [Suspect]
     Active Substance: OLMESARTAN MEDOXOMIL
     Indication: HYPERTENSION
     Dosage: 20 MG, QD
     Route: 065
     Dates: start: 2008
  5. MINOXIDIL. [Suspect]
     Active Substance: MINOXIDIL
     Indication: ALOPECIA
     Dosage: 5 %, UNKNOWN
     Route: 065
  6. FINASTERIDE. [Suspect]
     Active Substance: FINASTERIDE
     Indication: ALOPECIA
     Dosage: 5 MG, UNKNOWN
     Route: 065
  7. GLIFAGE [Concomitant]
     Active Substance: METFORMIN HYDROCHLORIDE
     Dosage: 500 MG, UNK
  8. VITAMINA D [Concomitant]
     Dosage: UNK

REACTIONS (4)
  - Hypertension [Not Recovered/Not Resolved]
  - Intentional product misuse [Recovered/Resolved]
  - Chest pain [Recovered/Resolved]
  - Muscle spasms [Recovered/Resolved]

NARRATIVE: CASE EVENT DATE: 2016
